FAERS Safety Report 15674821 (Version 2)
Quarter: 2018Q4

REPORT INFORMATION
  Report Type: Spontaneous
  Country: US (occurrence: US)
  Receive Date: 20181130
  Receipt Date: 20181211
  Transmission Date: 20190205
  Serious: Yes (Hospitalization, Other)
  Sender: FDA-Public Use
  Company Number: US-AMGEN-USASP2018170631

PATIENT
  Age: 36 Year
  Sex: Female
  Weight: 70.3 kg

DRUGS (3)
  1. ADRIAMYCIN [Suspect]
     Active Substance: DOXORUBICIN HYDROCHLORIDE
     Indication: TRIPLE NEGATIVE BREAST CANCER
     Dosage: 60 MG/M2, Q3WK
     Route: 065
     Dates: start: 20181106
  2. CYTOXAN [Suspect]
     Active Substance: CYCLOPHOSPHAMIDE
     Indication: TRIPLE NEGATIVE BREAST CANCER
     Dosage: 600 MG/M2, Q3WK
     Route: 065
     Dates: start: 20181106
  3. NEULASTA [Suspect]
     Active Substance: PEGFILGRASTIM
     Indication: ANAEMIA
     Dosage: 6 MG, Q2WK
     Route: 058
     Dates: start: 20181106

REACTIONS (7)
  - Neutrophil percentage decreased [Unknown]
  - Monocyte percentage increased [Unknown]
  - White blood cell count decreased [Unknown]
  - Lymphocyte percentage increased [Unknown]
  - Off label use [Unknown]
  - Neutropenia [Recovered/Resolved]
  - Basophil percentage increased [Unknown]

NARRATIVE: CASE EVENT DATE: 20181106
